FAERS Safety Report 7635131-6 (Version None)
Quarter: 2011Q3

REPORT INFORMATION
  Report Type: 
  Country: None (occurrence: None)
  Receive Date: 20110726
  Receipt Date: 20110706
  Transmission Date: 20111222
  Serious: Yes (Death, Hospitalization)
  Sender: FDA-Public Use
  Company Number: PHHY2011DZ59927

PATIENT
  Sex: Female
  Weight: 68 kg

DRUGS (5)
  1. SANDOSTATIN LAR [Suspect]
     Dosage: 30 MG EVERY 28 DAYS
     Route: 030
     Dates: start: 20110608
  2. LYRICA [Concomitant]
     Dosage: 100 MG, BID
     Route: 048
     Dates: start: 20100901
  3. SANDOSTATIN LAR [Suspect]
     Indication: NEUROENDOCRINE TUMOUR
     Dosage: 30 MG EVERY 28 DAYS
     Route: 030
     Dates: start: 20110314
  4. INSULIN [Concomitant]
     Indication: DIABETES MELLITUS
  5. MORPHINE SULFATE [Concomitant]
     Indication: ABDOMINAL PAIN
     Dosage: 60 MG, BID
     Dates: start: 20110627

REACTIONS (3)
  - LOSS OF CONSCIOUSNESS [None]
  - HYPOTENSION [None]
  - NEOPLASM MALIGNANT [None]
